FAERS Safety Report 23443468 (Version 1)
Quarter: 2024Q1

REPORT INFORMATION
  Report Type: Spontaneous
  Country: UA (occurrence: UA)
  Receive Date: 20240125
  Receipt Date: 20240125
  Transmission Date: 20240410
  Serious: Yes (Death)
  Sender: FDA-Public Use
  Company Number: UA-MYLANLABS-2024M1008157

PATIENT
  Age: 57 Year
  Sex: Female

DRUGS (2)
  1. PRETOMANID [Suspect]
     Active Substance: PRETOMANID
     Indication: Pulmonary tuberculosis
     Dosage: 200 MILLIGRAM, QD
     Route: 048
     Dates: start: 20231212, end: 20240105
  2. BEDAQUILINE [Suspect]
     Active Substance: BEDAQUILINE
     Indication: Pulmonary tuberculosis
     Dosage: 200 MILLIGRAM, QD (1 TAB CONTAINS BEDAQUILINE FUMARATE 120.89 MG (EQUIENT TO 100 MG OF BEDAQUILINE))
     Route: 048
     Dates: start: 20231212, end: 20240105

REACTIONS (1)
  - Death [Fatal]

NARRATIVE: CASE EVENT DATE: 20240105
